FAERS Safety Report 8158365-3 (Version None)
Quarter: 2012Q1

REPORT INFORMATION
  Report Type: 
  Country: None (occurrence: None)
  Receive Date: 20120217
  Receipt Date: 20120207
  Transmission Date: 20120608
  Serious: Yes (Hospitalization)
  Sender: FDA-Public Use
  Company Number: 001078846

PATIENT
  Age: 14 Year
  Sex: Male

DRUGS (1)
  1. PROACTIV 90 DAY KIT (PA90) [Suspect]
     Indication: ACNE
     Dosage: DAILY

REACTIONS (3)
  - SWELLING [None]
  - CONVULSION [None]
  - URTICARIA [None]
